FAERS Safety Report 15277271 (Version 2)
Quarter: 2018Q3

REPORT INFORMATION
  Report Type: Report from Study
  Country: FR (occurrence: FR)
  Receive Date: 20180814
  Receipt Date: 20180828
  Transmission Date: 20181010
  Serious: Yes (Hospitalization)
  Sender: FDA-Public Use
  Company Number: FR-ROCHE-2169178

PATIENT
  Age: 74 Year
  Sex: Male

DRUGS (12)
  1. VENETOCLAX. [Suspect]
     Active Substance: VENETOCLAX
     Dosage: CYCLE 1BIS D22 TO D35
     Route: 048
     Dates: start: 20171123, end: 20171206
  2. VENETOCLAX. [Suspect]
     Active Substance: VENETOCLAX
     Dosage: FROM CYCLE 9 D1 TO CYCLE 10 D9 // STOP DUE TO THIS AE
     Route: 048
     Dates: start: 20180621, end: 20180808
  3. VENETOCLAX. [Suspect]
     Active Substance: VENETOCLAX
     Dosage: CYCLE 2 FROM D1 TO D7
     Route: 048
     Dates: start: 20171207, end: 20171213
  4. OBINUTUZUMAB. [Suspect]
     Active Substance: OBINUTUZUMAB
     Indication: MANTLE CELL LYMPHOMA
     Dosage: CYCLE 1 DAY 1 (C1D1): 100 MG AND 900 MG ON D2; 1000 MG AT D8 AND D15
     Route: 042
     Dates: start: 20171005, end: 20171019
  5. IBRUTINIB [Suspect]
     Active Substance: IBRUTINIB
     Indication: MANTLE CELL LYMPHOMA
     Dosage: FROM CYCLE 1 TO CYCLE 8 D5 (STOP DUE TO AE)
     Route: 048
     Dates: start: 20171006, end: 20180528
  6. OBINUTUZUMAB. [Suspect]
     Active Substance: OBINUTUZUMAB
     Dosage: FROM CYCLE 1BIS TO CYCLE 8, D1 OF EACH CYCLE
     Route: 042
     Dates: start: 20171102, end: 20180524
  7. VENETOCLAX. [Suspect]
     Active Substance: VENETOCLAX
     Dosage: CYCLE 1BIS D15 TO D21
     Route: 048
     Dates: start: 20171116, end: 20171122
  8. VENETOCLAX. [Suspect]
     Active Substance: VENETOCLAX
     Indication: MANTLE CELL LYMPHOMA
     Dosage: 20 MILLIGRAM / CYCLE 1BIS D1 TO D7 // STOP DUE TO AE
     Route: 048
     Dates: start: 20171102, end: 20171108
  9. IBRUTINIB [Suspect]
     Active Substance: IBRUTINIB
     Dosage: FROM CYCLE 9 D1
     Route: 048
     Dates: start: 20180621
  10. VENETOCLAX. [Suspect]
     Active Substance: VENETOCLAX
     Dosage: FROM CYCLE 5 D1 TO CYCLE 7 D28 // STOP DUE TO AE
     Route: 048
     Dates: start: 20180301, end: 20180523
  11. VENETOCLAX. [Suspect]
     Active Substance: VENETOCLAX
     Dosage: FROM CYCLE 2 D8 TO CYCLE 4 D20 // STOP DUE TO AE
     Route: 048
     Dates: start: 20171214, end: 20180220
  12. OBINUTUZUMAB. [Suspect]
     Active Substance: OBINUTUZUMAB
     Dosage: FROM CYCLE 10, D1 EVERY 2 CYCLES
     Route: 042
     Dates: start: 20180731

REACTIONS (1)
  - Pneumonia [Not Recovered/Not Resolved]

NARRATIVE: CASE EVENT DATE: 20180809
